FAERS Safety Report 11104346 (Version 3)
Quarter: 2015Q2

REPORT INFORMATION
  Report Type: Spontaneous
  Country: US (occurrence: US)
  Receive Date: 20150511
  Receipt Date: 20150626
  Transmission Date: 20150821
  Serious: Yes (Other)
  Sender: FDA-Public Use
  Company Number: US-HOSPIRA-2852664

PATIENT
  Age: 27 Year
  Sex: Male

DRUGS (2)
  1. KETOROLAC [Suspect]
     Active Substance: KETOROLAC\KETOROLAC TROMETHAMINE
     Indication: TENSION HEADACHE
     Route: 030
  2. KETOROLAC [Suspect]
     Active Substance: KETOROLAC\KETOROLAC TROMETHAMINE
     Indication: TENSION HEADACHE
     Route: 030

REACTIONS (7)
  - Drug administration error [Recovered/Resolved]
  - Drug dose omission [Recovered/Resolved]
  - Dyspnoea [Unknown]
  - Asthma [Unknown]
  - Lung disorder [Unknown]
  - Product quality issue [Recovered/Resolved]
  - Seizure [Recovered/Resolved]

NARRATIVE: CASE EVENT DATE: 20150426
